FAERS Safety Report 25476061 (Version 2)
Quarter: 2025Q3

REPORT INFORMATION
  Report Type: Report from Study
  Country: BR (occurrence: BR)
  Receive Date: 20250625
  Receipt Date: 20250731
  Transmission Date: 20251020
  Serious: Yes (Other)
  Sender: JOHNSON AND JOHNSON
  Company Number: BR-JNJFOC-20250624832

PATIENT
  Age: 63 Year
  Sex: Female

DRUGS (1)
  1. RYBREVANT [Suspect]
     Active Substance: AMIVANTAMAB-VMJW
     Indication: Non-small cell lung cancer
     Dosage: LAST APPLICATION WAS PERFORMED ON 27-MAY-2025
     Route: 041
     Dates: start: 20240814

REACTIONS (6)
  - Thrombosis [Recovered/Resolved]
  - Immunodeficiency [Recovering/Resolving]
  - Pulmonary mass [Recovering/Resolving]
  - Pleural effusion [Unknown]
  - Wound [Recovered/Resolved]
  - Fatigue [Recovering/Resolving]

NARRATIVE: CASE EVENT DATE: 20250101
